FAERS Safety Report 5953487-7 (Version None)
Quarter: 2008Q4

REPORT INFORMATION
  Report Type: 
  Country: None (occurrence: None)
  Receive Date: 20081114
  Receipt Date: 20081106
  Transmission Date: 20090506
  Serious: No
  Sender: FDA-Public Use
  Company Number: MX-ROCHE-596261

PATIENT
  Sex: Female
  Weight: 48 kg

DRUGS (1)
  1. ROACCUTANE [Suspect]
     Indication: ACNE
     Route: 048
     Dates: start: 20070901, end: 20080410

REACTIONS (2)
  - NO ADVERSE EVENT [None]
  - PREGNANCY [None]
